FAERS Safety Report 7853344-5 (Version None)
Quarter: 2011Q3

REPORT INFORMATION
  Report Type: 
  Country: None (occurrence: None)
  Receive Date: 20110915
  Receipt Date: 20110502
  Transmission Date: 20111222
  Serious: Yes (Life-Threatening, Hospitalization)
  Sender: FDA-Public Use
  Company Number: 2011029122

PATIENT
  Sex: Male
  Weight: 90 kg

DRUGS (1)
  1. PRIVIGEN [Suspect]
     Indication: IDIOPATHIC THROMBOCYTOPENIC PURPURA
     Dosage: 100 G QD, INFUSED 100 GM INTRAVENOUS (NOT OTHERWISE SPECIFIED)
     Route: 042
     Dates: start: 20110324, end: 20110325

REACTIONS (6)
  - FLANK PAIN [None]
  - HAEMOGLOBIN DECREASED [None]
  - HAEMATURIA [None]
  - HAEMOLYSIS [None]
  - PALLOR [None]
  - FATIGUE [None]
